FAERS Safety Report 14771147 (Version 1)
Quarter: 2018Q2

REPORT INFORMATION
  Report Type: Spontaneous
  Country: US (occurrence: US)
  Receive Date: 20180417
  Receipt Date: 20180417
  Transmission Date: 20180711
  Serious: No
  Sender: FDA-Public Use
  Company Number: US-ALLERGAN-1801917US

PATIENT
  Age: 29 Year
  Sex: Female

DRUGS (1)
  1. LATISSE [Suspect]
     Active Substance: BIMATOPROST
     Indication: GROWTH OF EYELASHES
     Dosage: 2 GTT, QHS
     Route: 061
     Dates: start: 201712, end: 201801

REACTIONS (5)
  - Skin exfoliation [Not Recovered/Not Resolved]
  - Rash [Not Recovered/Not Resolved]
  - Eye swelling [Recovering/Resolving]
  - Pruritus [Not Recovered/Not Resolved]
  - Erythema [Recovering/Resolving]

NARRATIVE: CASE EVENT DATE: 201712
